FAERS Safety Report 5482162-0 (Version None)
Quarter: 2007Q4

REPORT INFORMATION
  Report Type: 
  Country: None (occurrence: None)
  Receive Date: 20071005
  Receipt Date: 20070928
  Transmission Date: 20080405
  Serious: Yes (Life-Threatening, Hospitalization)
  Sender: FDA-Public Use
  Company Number: SP01055

PATIENT
  Age: 38 Year
  Sex: Male

DRUGS (3)
  1. COLAZAL [Suspect]
     Indication: COLITIS ULCERATIVE
     Dosage: 6.75 GM (2.25 GM, 3 IN 1 D), ORAL
     Route: 048
  2. PREDNISOLONE [Concomitant]
  3. MESALAZINE [Concomitant]

REACTIONS (4)
  - CHEST PAIN [None]
  - ECHOCARDIOGRAM ABNORMAL [None]
  - ELECTROCARDIOGRAM T WAVE INVERSION [None]
  - MYOCARDITIS [None]
